FAERS Safety Report 20230728 (Version 2)
Quarter: 2022Q1

REPORT INFORMATION
  Report Type: Spontaneous
  Country: EG (occurrence: EG)
  Receive Date: 20211227
  Receipt Date: 20220114
  Transmission Date: 20220423
  Serious: Yes (Life-Threatening, Hospitalization)
  Sender: FDA-Public Use
  Company Number: EG-NOVOPROD-878068

PATIENT
  Age: 804 Month
  Sex: Female

DRUGS (3)
  1. BENFOTIAMINE\CYANOCOBALAMIN\PYRIDOXINE HYDROCHLORIDE [Concomitant]
     Active Substance: BENFOTIAMINE\CYANOCOBALAMIN\PYRIDOXINE HYDROCHLORIDE
     Indication: Neuropathy peripheral
     Dosage: NOT REGULARLY
     Route: 048
  2. NOVORAPID [Suspect]
     Active Substance: INSULIN ASPART
     Indication: Diabetes mellitus
     Dosage: 12-16 IU/ BREAKFAST, ABOUT  21 IU/LUNCH AND  13-15 IU/DINNER.
     Route: 058
  3. ERASTAPEX [Concomitant]
     Indication: Hypertension
     Dosage: ONCE DAILY   STARTED 1.5 YEARS AGO.
     Route: 048

REACTIONS (2)
  - Diabetic hyperglycaemic coma [Not Recovered/Not Resolved]
  - Device issue [Not Recovered/Not Resolved]
